FAERS Safety Report 7487179-2 (Version None)
Quarter: 2011Q2

REPORT INFORMATION
  Report Type: 
  Country: None (occurrence: None)
  Receive Date: 20110510
  Receipt Date: 20110408
  Transmission Date: 20111010
  Serious: Yes (Other)
  Sender: FDA-Public Use
  Company Number: TPA2011A01498

PATIENT
  Sex: Female

DRUGS (1)
  1. DEXILANT [Suspect]
     Dosage: PER ORAL
     Route: 048
     Dates: start: 20100101

REACTIONS (3)
  - RENAL FAILURE [None]
  - DEHYDRATION [None]
  - DIALYSIS [None]
